FAERS Safety Report 8557285-X (Version None)
Quarter: 2012Q3

REPORT INFORMATION
  Report Type: 
  Country: None (occurrence: None)
  Receive Date: 20120801
  Receipt Date: 20120724
  Transmission Date: 20120928
  Serious: Yes (Hospitalization, Other)
  Sender: FDA-Public Use
  Company Number: CH-009507513-1207CHE010524

PATIENT

DRUGS (15)
  1. SINTROM [Suspect]
     Dosage: UNK, PRN
     Route: 048
     Dates: end: 20120429
  2. CARDIPLANT [Concomitant]
     Dosage: 80 MG, BID
     Route: 048
  3. NEBIVOLOL HCL [Suspect]
     Indication: ESSENTIAL HYPERTENSION
     Dosage: 1.25 MG, QD
     Route: 048
  4. SPIRIVA [Concomitant]
     Dosage: 18 MICROGRAM, QD
     Route: 055
  5. ACETYLCYSTEINE [Concomitant]
     Dosage: 600 MG, QD
     Route: 048
  6. VOLTAREN [Suspect]
     Dosage: 50 MG, TID
     Route: 048
     Dates: end: 20120501
  7. PRIORIN N [Concomitant]
     Dosage: 1 DF, BID
     Route: 048
  8. ALLOPURINOL [Suspect]
     Indication: GOUT
     Dosage: 300 MG, QD
     Route: 048
     Dates: end: 20120501
  9. INDAPAMIDE [Suspect]
     Indication: ESSENTIAL HYPERTENSION
     Dosage: 1.5 MG, QD
     Route: 048
  10. TRANSIPEG [Concomitant]
     Dosage: 1 DF, QD
     Route: 048
  11. EZETIMIBE [Suspect]
     Indication: LIPID METABOLISM DISORDER
     Dosage: 1 DF, QD
     Route: 048
     Dates: end: 20120401
  12. ASPIRIN [Suspect]
     Dosage: 100 MG, QD
  13. IRBESARTAN [Concomitant]
     Dosage: 150 MG, QD
     Route: 048
  14. KCI PHARMA MEGAVIT [Concomitant]
     Dosage: 10 MMOL, BID
     Route: 048
  15. AVODART [Concomitant]
     Dosage: 0.5 MG, QD
     Route: 048

REACTIONS (7)
  - RENAL FAILURE ACUTE [None]
  - GASTROINTESTINAL HAEMORRHAGE [None]
  - MYOCARDIAL INFARCTION [None]
  - GASTRIC ULCER [None]
  - DIZZINESS [None]
  - HAEMORRHAGIC ANAEMIA [None]
  - HAEMATOCHEZIA [None]
